FAERS Safety Report 18038120 (Version 1)
Quarter: 2020Q3

REPORT INFORMATION
  Report Type: Spontaneous
  Country: US (occurrence: US)
  Receive Date: 20200717
  Receipt Date: 20200717
  Transmission Date: 20201103
  Serious: Yes (Other)
  Sender: FDA-Public Use
  Company Number: US-GILEAD-2020-0483296

PATIENT

DRUGS (3)
  1. CYCLOPHOSPHAMIDE. [Concomitant]
     Active Substance: CYCLOPHOSPHAMIDE
  2. YESCARTA [Suspect]
     Active Substance: AXICABTAGENE CILOLEUCEL
     Indication: PRODUCT USED FOR UNKNOWN INDICATION
     Dosage: UNK
     Route: 042
  3. FLUDARABINE [Concomitant]
     Active Substance: FLUDARABINE PHOSPHATE

REACTIONS (12)
  - Neutropenia [Unknown]
  - Cytopenia [Unknown]
  - Cerebrovascular accident [Unknown]
  - Haemophagocytic lymphohistiocytosis [Unknown]
  - Brain oedema [Unknown]
  - Cytokine release syndrome [Unknown]
  - C-reactive protein increased [Unknown]
  - Neurotoxicity [Unknown]
  - Asthenia [Unknown]
  - Encephalopathy [Unknown]
  - Seizure [Unknown]
  - Delirium [Unknown]
